FAERS Safety Report 20945957 (Version 1)
Quarter: 2022Q2

REPORT INFORMATION
  Report Type: Report from Study
  Country: BR (occurrence: None)
  Receive Date: 20220610
  Receipt Date: 20220610
  Transmission Date: 20220721
  Serious: Yes (Other)
  Sender: FDA-Public Use
  Company Number: BR-Merck Healthcare KGaA-9327797

PATIENT
  Sex: Female

DRUGS (3)
  1. REBIF [Suspect]
     Active Substance: INTERFERON BETA-1A
     Indication: Multiple sclerosis
     Route: 067
     Dates: start: 20140320, end: 20171105
  2. REBIF [Suspect]
     Active Substance: INTERFERON BETA-1A
     Route: 067
     Dates: start: 20171106, end: 20190701
  3. INTERFERON BETA-1A [Suspect]
     Active Substance: INTERFERON BETA-1A
     Indication: Multiple sclerosis
     Route: 067
     Dates: start: 20190701

REACTIONS (4)
  - Pre-eclampsia [Unknown]
  - Premature delivery [Recovered/Resolved]
  - Live birth [Recovered/Resolved]
  - Paternal exposure during pregnancy [Recovered/Resolved]

NARRATIVE: CASE EVENT DATE: 20200229
